FAERS Safety Report 23136145 (Version 1)
Quarter: 2023Q4

REPORT INFORMATION
  Report Type: Spontaneous
  Country: US (occurrence: US)
  Receive Date: 20231102
  Receipt Date: 20231102
  Transmission Date: 20240109
  Serious: No
  Sender: FDA-Public Use
  Company Number: US-TAKEDA-2023TUS104868

PATIENT
  Sex: Female
  Weight: 77 kg

DRUGS (1)
  1. ADDERALL XR [Suspect]
     Active Substance: AMPHETAMINE ASPARTATE\AMPHETAMINE SULFATE\DEXTROAMPHETAMINE SACCHARATE\DEXTROAMPHETAMINE SULFATE
     Indication: Attention deficit hyperactivity disorder
     Dosage: 30 MILLIGRAM, BID
     Route: 065

REACTIONS (12)
  - Musculoskeletal disorder [Recovering/Resolving]
  - Illness [Recovering/Resolving]
  - Dysstasia [Recovering/Resolving]
  - Swollen tongue [Recovering/Resolving]
  - Lip swelling [Recovering/Resolving]
  - Gastrointestinal sounds abnormal [Unknown]
  - Fear [Unknown]
  - Tremor [Recovering/Resolving]
  - Speech disorder [Recovering/Resolving]
  - Vomiting [Recovering/Resolving]
  - Feeling abnormal [Unknown]
  - Inappropriate schedule of product administration [Unknown]
